FAERS Safety Report 24247063 (Version 1)
Quarter: 2024Q3

REPORT INFORMATION
  Report Type: Spontaneous
  Country: FR (occurrence: FR)
  Receive Date: 20240826
  Receipt Date: 20240826
  Transmission Date: 20241017
  Serious: Yes (Life-Threatening)
  Sender: SHILPA MEDICARE
  Company Number: None

PATIENT
  Age: 79 Year
  Sex: Female
  Weight: 60 kg

DRUGS (5)
  1. ERLOTINIB [Suspect]
     Active Substance: ERLOTINIB
     Indication: Lung adenocarcinoma
     Dosage: 25MG PAR JOUR
     Route: 048
     Dates: start: 20221206, end: 20240205
  2. ERLOTINIB [Suspect]
     Active Substance: ERLOTINIB
     Dosage: 25MG 1J/2
     Route: 048
     Dates: start: 20221014, end: 20221205
  3. TAGRISSO [Suspect]
     Active Substance: OSIMERTINIB
     Indication: Lung adenocarcinoma
     Dosage: 40MG 1J/2
     Route: 048
     Dates: start: 20240207, end: 20240611
  4. CAPECITABINE [Suspect]
     Active Substance: CAPECITABINE
     Indication: Rectal cancer
     Dosage: TOUS LES JOURS DE LA RADIOTH?RAPIE (25 S?ANCES)
     Route: 048
     Dates: start: 20170731, end: 20170904
  5. LEVOTHYROXINE [Concomitant]
     Active Substance: LEVOTHYROXINE\LEVOTHYROXINE SODIUM
     Indication: Hypothyroidism
     Route: 065

REACTIONS (2)
  - Cardiac failure [Not Recovered/Not Resolved]
  - Atrial fibrillation [Recovering/Resolving]

NARRATIVE: CASE EVENT DATE: 20240514
